FAERS Safety Report 12061902 (Version 1)
Quarter: 2016Q1

REPORT INFORMATION
  Report Type: Spontaneous
  Country: US (occurrence: US)
  Receive Date: 20160210
  Receipt Date: 20160210
  Transmission Date: 20160526
  Serious: No
  Sender: FDA-Public Use
  Company Number: US-INVAGEN PHARMACEUTICALS, INC.-1047609

PATIENT
  Age: 62 Year
  Sex: Female
  Weight: 76.82 kg

DRUGS (3)
  1. FEMARA [Concomitant]
     Active Substance: LETROZOLE
  2. GABAPENTIN. [Suspect]
     Active Substance: GABAPENTIN
     Indication: NEUROPATHY PERIPHERAL
     Route: 048
     Dates: start: 20151014
  3. OXYCODONE HYDCHLORIDE [Concomitant]
     Active Substance: OXYCODONE HYDROCHLORIDE

REACTIONS (7)
  - Neutrophil count decreased [None]
  - Platelet count decreased [None]
  - Red blood cell count decreased [None]
  - White blood cell count decreased [None]
  - Drug ineffective [Recovered/Resolved]
  - Haematocrit decreased [None]
  - Haemoglobin decreased [None]
